FAERS Safety Report 17350741 (Version 2)
Quarter: 2020Q1

REPORT INFORMATION
  Report Type: Spontaneous
  Country: US (occurrence: US)
  Receive Date: 20200130
  Receipt Date: 20200220
  Transmission Date: 20200409
  Serious: No
  Sender: FDA-Public Use
  Company Number: US-JNJFOC-20200141770

PATIENT
  Sex: Female
  Weight: 64.92 kg

DRUGS (1)
  1. TYLENOL [Suspect]
     Active Substance: ACETAMINOPHEN
     Indication: PAIN IN EXTREMITY
     Dosage: DOSE AND FREQUENCY WAS AS PER WHAT IT (PRODUCT/LABEL) SAID
     Route: 048

REACTIONS (1)
  - Drug ineffective [Unknown]
